FAERS Safety Report 15344780 (Version 1)
Quarter: 2018Q3

REPORT INFORMATION
  Report Type: Spontaneous
  Country: ZA (occurrence: ZA)
  Receive Date: 20180903
  Receipt Date: 20180903
  Transmission Date: 20181010
  Serious: Yes (Hospitalization)
  Sender: FDA-Public Use
  Company Number: PHHY2018ZA082748

PATIENT

DRUGS (1)
  1. SIGNIFOR LAR [Suspect]
     Active Substance: PASIREOTIDE
     Indication: CUSHING^S SYNDROME
     Dosage: UNK
     Route: 065

REACTIONS (4)
  - Adrenal gland cancer [Unknown]
  - Metastasis [Unknown]
  - Diarrhoea [Not Recovered/Not Resolved]
  - Cortisol abnormal [Unknown]
